FAERS Safety Report 7668176-0 (Version None)
Quarter: 2011Q3

REPORT INFORMATION
  Report Type: 
  Country: None (occurrence: None)
  Receive Date: 20110808
  Receipt Date: 20110728
  Transmission Date: 20111222
  Serious: Yes (Other)
  Sender: FDA-Public Use
  Company Number: US-JNJFOC-20110802132

PATIENT
  Age: 35 Year
  Sex: Female
  Weight: 58.97 kg

DRUGS (2)
  1. ZYRTEC [Suspect]
     Indication: SEASONAL ALLERGY
     Route: 048
     Dates: start: 20110726, end: 20110726
  2. ZYRTEC [Suspect]
     Route: 048

REACTIONS (3)
  - OVERDOSE [None]
  - VISUAL FIELD DEFECT [None]
  - MIOSIS [None]
